FAERS Safety Report 6675165-1 (Version None)
Quarter: 2010Q2

REPORT INFORMATION
  Report Type: 
  Country: None (occurrence: None)
  Receive Date: 20100409
  Receipt Date: 20100331
  Transmission Date: 20101027
  Serious: Yes (Other)
  Sender: FDA-Public Use
  Company Number: GXKR2010GB03825

PATIENT

DRUGS (7)
  1. WARFARIN SODIUM [Suspect]
     Route: 065
  2. ATENOLOL [Concomitant]
  3. CLOPIDOGREL [Concomitant]
  4. DIPYRIDAMOLE [Concomitant]
  5. NICORANDIL [Concomitant]
  6. PERINDOPRIL ERBUMINE [Concomitant]
  7. SIMVASTATIN [Concomitant]

REACTIONS (1)
  - INTERNATIONAL NORMALISED RATIO FLUCTUATION [None]
